FAERS Safety Report 19055712 (Version 1)
Quarter: 2021Q1

REPORT INFORMATION
  Report Type: Spontaneous
  Country: US (occurrence: US)
  Receive Date: 20210324
  Receipt Date: 20210324
  Transmission Date: 20210420
  Serious: Yes (Other)
  Sender: FDA-Public Use
  Company Number: US-TEVA-2021-US-1892553

PATIENT
  Sex: Male

DRUGS (15)
  1. OXYCODONE/ APAP [Suspect]
     Active Substance: ACETAMINOPHEN\OXYCODONE HYDROCHLORIDE
     Route: 065
  2. VICODIN [Suspect]
     Active Substance: ACETAMINOPHEN\HYDROCODONE BITARTRATE
     Route: 065
  3. XANAX [Suspect]
     Active Substance: ALPRAZOLAM
     Route: 065
  4. CODEINE [Suspect]
     Active Substance: CODEINE
  5. FENTANYL. [Suspect]
     Active Substance: FENTANYL
     Route: 065
  6. TRAMADOL. [Suspect]
     Active Substance: TRAMADOL
     Route: 065
  7. MEPERIDINE [Suspect]
     Active Substance: MEPERIDINE
     Route: 065
  8. BUTRANS [Suspect]
     Active Substance: BUPRENORPHINE
     Route: 065
  9. PERCOCET [Suspect]
     Active Substance: ACETAMINOPHEN\OXYCODONE HYDROCHLORIDE
     Route: 065
  10. FLEXERIL [Suspect]
     Active Substance: CYCLOBENZAPRINE HYDROCHLORIDE
     Route: 065
  11. VALIUM [Suspect]
     Active Substance: DIAZEPAM
     Route: 065
  12. SOMA [Suspect]
     Active Substance: CARISOPRODOL
     Route: 065
  13. DARVOCET [Suspect]
     Active Substance: ACETAMINOPHEN\PROPOXYPHENE HYDROCHLORIDE
     Route: 065
  14. OPANA [Suspect]
     Active Substance: OXYMORPHONE HYDROCHLORIDE
     Route: 065
  15. OXYCONTIN [Suspect]
     Active Substance: OXYCODONE HYDROCHLORIDE

REACTIONS (7)
  - Withdrawal syndrome [Unknown]
  - Dependence [Unknown]
  - Suicidal ideation [Unknown]
  - Lung disorder [Unknown]
  - Anxiety [Unknown]
  - Depression [Unknown]
  - Overdose [Unknown]
